FAERS Safety Report 20061773 (Version 1)
Quarter: 2021Q4

REPORT INFORMATION
  Report Type: Spontaneous
  Country: UM (occurrence: None)
  Receive Date: 20211112
  Receipt Date: 20211112
  Transmission Date: 20220303
  Serious: Yes (Other)
  Sender: FDA-Public Use
  Company Number: UM-ROCHE-2954517

PATIENT
  Age: 18 Year
  Sex: Female

DRUGS (1)
  1. TOCILIZUMAB [Suspect]
     Active Substance: TOCILIZUMAB
     Indication: Neuromyelitis optica spectrum disorder
     Route: 065

REACTIONS (4)
  - Blood triglycerides increased [Unknown]
  - Diabetes mellitus [Unknown]
  - Intentional product use issue [Unknown]
  - Off label use [Unknown]
